FAERS Safety Report 10065347 (Version 1)
Quarter: 2014Q1

REPORT INFORMATION
  Report Type: Spontaneous
  Country: US (occurrence: None)
  Receive Date: 20140328
  Receipt Date: 20140328
  Transmission Date: 20141002
  Serious: No
  Sender: FDA-Public Use
  Company Number: 1000052436

PATIENT
  Age: 86 Year
  Sex: Female

DRUGS (9)
  1. LINZESS [Suspect]
     Indication: IRRITABLE BOWEL SYNDROME
     Route: 048
     Dates: start: 201308, end: 201309
  2. ECOTRIN (ACETYLSALICYLIC ACID) [Concomitant]
  3. ESCITALOPRAM (ESCITALOPRAM OXALATE) [Concomitant]
  4. OLANZAPINE [Concomitant]
  5. ZOCOR (SIMVASTATIN) [Concomitant]
  6. LITHIUM [Concomitant]
  7. CALCIUM (CALCIUM) [Concomitant]
  8. LEVOTHYROXINE (LEVOTHYROXINE SODIUM) [Concomitant]
  9. PANTOPRAZOLE (PANTOPRAZOLE) [Concomitant]

REACTIONS (4)
  - Diarrhoea [None]
  - Asthenia [None]
  - Constipation [None]
  - Tinnitus [None]
